FAERS Safety Report 11270577 (Version 1)
Quarter: 2015Q3

REPORT INFORMATION
  Report Type: Spontaneous
  Country: DK (occurrence: DK)
  Receive Date: 20150714
  Receipt Date: 20150714
  Transmission Date: 20151125
  Serious: Yes (Other)
  Sender: FDA-Public Use
  Company Number: PHHY2015DK080158

PATIENT
  Sex: Female
  Weight: 90 kg

DRUGS (2)
  1. MODIFENAC [Concomitant]
     Active Substance: DICLOFENAC
     Indication: ARTHRALGIA
     Route: 048
     Dates: start: 20040101
  2. GABAPENTIN SANDOZ [Suspect]
     Active Substance: GABAPENTIN
     Indication: PAIN
     Dosage: STYRKE: 300 MG
     Route: 048
     Dates: start: 20131210, end: 20140115

REACTIONS (11)
  - Abdominal pain [Recovered/Resolved]
  - Influenza like illness [Recovered/Resolved]
  - Suicidal ideation [Recovered/Resolved]
  - Headache [Unknown]
  - Depression [Recovered/Resolved]
  - Dry mouth [Recovered/Resolved]
  - Respiratory tract infection [Recovered/Resolved]
  - Sleep disorder [Recovered/Resolved]
  - Hot flush [Unknown]
  - Nausea [Unknown]
  - Nightmare [Recovered/Resolved]

NARRATIVE: CASE EVENT DATE: 2013
